FAERS Safety Report 6371416-1 (Version None)
Quarter: 2009Q3

REPORT INFORMATION
  Report Type: 
  Country: None (occurrence: None)
  Receive Date: 20090923
  Receipt Date: 20071106
  Transmission Date: 20100115
  Serious: Yes (Other)
  Sender: FDA-Public Use
  Company Number: US-ASTRAZENECA-2007UW13924

PATIENT
  Age: 16590 Day
  Sex: Female
  Weight: 91.2 kg

DRUGS (7)
  1. SEROQUEL [Suspect]
     Indication: BIPOLAR DISORDER
     Dosage: 25-100 MG DAILY
     Route: 048
     Dates: start: 20020625
  2. SEROQUEL [Suspect]
     Indication: DEPRESSION
     Dosage: 25-100 MG DAILY
     Route: 048
     Dates: start: 20020625
  3. DEPAKOTE [Concomitant]
     Indication: CONVULSION
     Dosage: STRENGTH 250MG, 500MG.  DOSE 60-1000 MG DAILY
     Route: 048
     Dates: start: 19990610
  4. PAXIL [Concomitant]
     Dosage: DOSE 10-25 MG DAILY
     Dates: start: 19990610
  5. PREDNISONE [Concomitant]
     Dates: start: 19990827
  6. PREMARIN [Concomitant]
     Dates: start: 20010630
  7. TOPROL-XL [Concomitant]
     Indication: HYPERTENSION
     Dosage: STRENGTH 25 MG, 50 MG
     Dates: start: 20021017

REACTIONS (5)
  - DIABETES MELLITUS [None]
  - DIABETES MELLITUS INADEQUATE CONTROL [None]
  - DIABETIC KETOACIDOSIS [None]
  - TYPE 1 DIABETES MELLITUS [None]
  - TYPE 2 DIABETES MELLITUS [None]
